FAERS Safety Report 13112867 (Version 1)
Quarter: 2017Q1

REPORT INFORMATION
  Report Type: Report from Study
  Country: IL (occurrence: IL)
  Receive Date: 20170113
  Receipt Date: 20170113
  Transmission Date: 20170428
  Serious: Yes (Hospitalization)
  Sender: FDA-Public Use
  Company Number: PHHO2016IL015824

PATIENT
  Age: 61 Year
  Sex: Male
  Weight: 89 kg

DRUGS (5)
  1. MYFORTIC [Suspect]
     Active Substance: MYCOPHENOLATE SODIUM
     Dosage: 360 MG, TID
     Route: 048
     Dates: start: 20161020, end: 20161103
  2. MYFORTIC [Suspect]
     Active Substance: MYCOPHENOLATE SODIUM
     Dosage: 360 MG, TID
     Route: 048
     Dates: start: 20161007, end: 20161012
  3. MYFORTIC [Suspect]
     Active Substance: MYCOPHENOLATE SODIUM
     Dosage: 360 MG, TID
     Route: 048
     Dates: start: 20161108
  4. TACROLIMUS. [Suspect]
     Active Substance: TACROLIMUS
     Indication: RENAL TRANSPLANT
     Dosage: 1.5 MG, BID
     Route: 048
     Dates: start: 20151007
  5. NO TREATMENT RECEIVED [Suspect]
     Active Substance: UNSPECIFIED INGREDIENT
     Indication: RENAL TRANSPLANT
     Dosage: NO TREATMENT
     Route: 065

REACTIONS (4)
  - Urosepsis [Recovered/Resolved]
  - Urinary retention [Recovered/Resolved]
  - Urinary tract infection [Recovered/Resolved]
  - Orchitis [Recovered/Resolved]

NARRATIVE: CASE EVENT DATE: 20161013
